FAERS Safety Report 20141261 (Version 2)
Quarter: 2022Q1

REPORT INFORMATION
  Report Type: Report from Study
  Country: JP (occurrence: JP)
  Receive Date: 20211202
  Receipt Date: 20220128
  Transmission Date: 20220424
  Serious: Yes (Hospitalization)
  Sender: FDA-Public Use
  Company Number: JP-JNJFOC-20211034357

PATIENT
  Age: 34 Year
  Sex: Female

DRUGS (11)
  1. MACITENTAN [Suspect]
     Active Substance: MACITENTAN
     Indication: Pulmonary arterial hypertension
     Dosage: IN THE MORNING
     Route: 048
     Dates: start: 20160516, end: 20190827
  2. MACITENTAN [Suspect]
     Active Substance: MACITENTAN
     Dosage: IN THE MORNING
     Route: 048
     Dates: start: 20190828, end: 20210411
  3. MACITENTAN [Suspect]
     Active Substance: MACITENTAN
     Dosage: IN THE MORNING
     Route: 048
     Dates: start: 20210412
  4. SLOW-K [Concomitant]
     Active Substance: POTASSIUM CHLORIDE
     Indication: Prophylaxis
     Route: 048
     Dates: start: 20160516, end: 20190521
  5. CORTRIL [Concomitant]
     Active Substance: HYDROCORTISONE
     Indication: Prophylaxis
     Dosage: 15MG IN THE MORNING, 5MG IN THE EVENING
     Route: 048
     Dates: start: 20150219
  6. RABEPRAZOLE SODIUM [Concomitant]
     Active Substance: RABEPRAZOLE SODIUM
     Indication: Prophylaxis
     Route: 048
     Dates: start: 20140203, end: 20180522
  7. AZOSEMIDE [Concomitant]
     Active Substance: AZOSEMIDE
     Indication: Pulmonary arterial hypertension
     Route: 048
     Dates: start: 20140203
  8. SPIRONOLACTONE [Concomitant]
     Active Substance: SPIRONOLACTONE
     Indication: Pulmonary arterial hypertension
     Route: 048
     Dates: start: 20140203
  9. RIOCIGUAT [Concomitant]
     Active Substance: RIOCIGUAT
     Indication: Pulmonary arterial hypertension
     Route: 048
     Dates: start: 20160516
  10. TREPROSTINIL [Concomitant]
     Active Substance: TREPROSTINIL
     Indication: Pulmonary arterial hypertension
     Route: 041
     Dates: start: 20150312, end: 20180312
  11. SODIUM FERROUS CITRATE [Concomitant]
     Active Substance: SODIUM FERROUS CITRATE
     Indication: Anaemia prophylaxis
     Route: 048
     Dates: start: 20160309, end: 20160705

REACTIONS (2)
  - Pneumonia [Recovered/Resolved]
  - Hepatic function abnormal [Recovered/Resolved]

NARRATIVE: CASE EVENT DATE: 20170123
